FAERS Safety Report 6994566-5 (Version None)
Quarter: 2010Q3

REPORT INFORMATION
  Report Type: 
  Country: None (occurrence: None)
  Receive Date: 20100917
  Receipt Date: 20100909
  Transmission Date: 20110219
  Serious: Yes (Other)
  Sender: FDA-Public Use
  Company Number: US-AMGEN-QUU432026

PATIENT
  Sex: Female
  Weight: 18.5 kg

DRUGS (2)
  1. NPLATE [Suspect]
     Indication: IDIOPATHIC THROMBOCYTOPENIC PURPURA
     Route: 058
     Dates: start: 20091228, end: 20100223
  2. IMMU-G [Concomitant]
     Route: 042
     Dates: start: 20081104

REACTIONS (1)
  - DRUG INEFFECTIVE [None]
